FAERS Safety Report 6879838-7 (Version None)
Quarter: 2010Q3

REPORT INFORMATION
  Report Type: 
  Country: None (occurrence: None)
  Receive Date: 20100728
  Receipt Date: 20100719
  Transmission Date: 20110219
  Serious: Yes (Hospitalization, Other)
  Sender: FDA-Public Use
  Company Number: US-TEVA-241703USA

PATIENT
  Age: 90 Year
  Sex: Male

DRUGS (1)
  1. AMIODARONE HYDROCHLORIDE [Suspect]
     Indication: ATRIAL FIBRILLATION

REACTIONS (2)
  - LIVER DISORDER [None]
  - NEUROTOXICITY [None]
